FAERS Safety Report 4931631-8 (Version None)
Quarter: 2006Q1

REPORT INFORMATION
  Report Type: 
  Country: None (occurrence: None)
  Receive Date: 20060303
  Receipt Date: 20051026
  Transmission Date: 20060701
  Serious: No
  Sender: FDA-Public Use
  Company Number: US-BRISTOL-MYERS SQUIBB COMPANY-13157896

PATIENT
  Sex: Male
  Weight: 71 kg

DRUGS (8)
  1. ERBITUX [Suspect]
     Indication: COLORECTAL CANCER
     Route: 042
  2. BENADRYL [Concomitant]
     Indication: PREMEDICATION
     Route: 042
  3. CAMPTOSAR [Concomitant]
     Route: 042
  4. DECADRON SRC [Concomitant]
     Indication: PREMEDICATION
     Route: 042
  5. ANZEMET [Concomitant]
     Indication: PREMEDICATION
     Route: 042
  6. ATROPINE [Concomitant]
     Indication: PREMEDICATION
     Route: 042
  7. LORTAB [Concomitant]
  8. IMODIUM [Concomitant]

REACTIONS (2)
  - EYE PRURITUS [None]
  - RASH GENERALISED [None]
